FAERS Safety Report 10920267 (Version 1)
Quarter: 2015Q1

REPORT INFORMATION
  Report Type: Report from Study
  Country: VE (occurrence: VE)
  Receive Date: 20150317
  Receipt Date: 20150317
  Transmission Date: 20150721
  Serious: Yes (Death)
  Sender: FDA-Public Use
  Company Number: VE-BIOGENIDEC-2015BI014009

PATIENT

DRUGS (2)
  1. TRAMADOL [Concomitant]
     Active Substance: TRAMADOL
     Route: 064
     Dates: start: 201501, end: 201501
  2. TYSABRI [Suspect]
     Active Substance: NATALIZUMAB
     Indication: MATERNAL EXPOSURE TIMING UNSPECIFIED
     Route: 064
     Dates: start: 20100908, end: 20141114

REACTIONS (1)
  - Foetal heart rate decreased [Fatal]

NARRATIVE: CASE EVENT DATE: 20150120
